FAERS Safety Report 12679762 (Version 1)
Quarter: 2016Q3

REPORT INFORMATION
  Report Type: Spontaneous
  Country: BR (occurrence: BR)
  Receive Date: 20160824
  Receipt Date: 20160824
  Transmission Date: 20161109
  Serious: Yes (Hospitalization)
  Sender: FDA-Public Use
  Company Number: PHHY2016BR114795

PATIENT
  Sex: Female

DRUGS (2)
  1. EXELON PATCH [Suspect]
     Active Substance: RIVASTIGMINE
     Indication: PRODUCT USED FOR UNKNOWN INDICATION
     Dosage: 13.3 MG, QD (PATCH: 27 MG/ 15 CM2)
     Route: 062
  2. EXELON PATCH [Suspect]
     Active Substance: RIVASTIGMINE
     Dosage: 2 DF, (PATCH: 27 MG/ 15 CM2)
     Route: 062

REACTIONS (9)
  - Seizure [Unknown]
  - Drug administration error [Unknown]
  - Vomiting [Unknown]
  - Abnormal faeces [Unknown]
  - Incorrect drug administration duration [Unknown]
  - Syncope [Unknown]
  - Asthenia [Unknown]
  - Malaise [Unknown]
  - Gastrointestinal infection [Unknown]
